FAERS Safety Report 7271518-1 (Version None)
Quarter: 2011Q1

REPORT INFORMATION
  Report Type: 
  Country: None (occurrence: None)
  Receive Date: 20110128
  Receipt Date: 20110128
  Transmission Date: 20110831
  Serious: No
  Sender: FDA-Public Use
  Company Number: None

PATIENT
  Sex: Male
  Weight: 96.6162 kg

DRUGS (1)
  1. PROPRANOLOL [Suspect]
     Indication: HEART RATE ABNORMAL
     Dosage: 80 MG QD ORAL
     Route: 048
     Dates: start: 20080101

REACTIONS (1)
  - HEART RATE ABNORMAL [None]
